FAERS Safety Report 7416574-2 (Version None)
Quarter: 2011Q2

REPORT INFORMATION
  Report Type: 
  Country: None (occurrence: None)
  Receive Date: 20110415
  Receipt Date: 20110406
  Transmission Date: 20111010
  Serious: Yes (Hospitalization)
  Sender: FDA-Public Use
  Company Number: DE-BIOGENIDEC-2009BI005705

PATIENT
  Age: 40 Year
  Sex: Male
  Weight: 85 kg

DRUGS (2)
  1. ANTIDRESSIVE NOT OTHERWISE SPECIFIED [Concomitant]
     Indication: DEPRESSION
  2. TYSABRI [Suspect]
     Indication: RELAPSING-REMITTING MULTIPLE SCLEROSIS
     Route: 042
     Dates: start: 20070622, end: 20090128

REACTIONS (2)
  - CENTRAL NERVOUS SYSTEM LYMPHOMA [None]
  - HERPES ZOSTER [None]
